FAERS Safety Report 5043570-5 (Version None)
Quarter: 2006Q2

REPORT INFORMATION
  Report Type: 
  Country: None (occurrence: None)
  Receive Date: 20060601
  Receipt Date: 20060121
  Transmission Date: 20061013
  Serious: No
  Sender: FDA-Public Use
  Company Number: 2006PV007413

PATIENT
  Age: 54 Year
  Sex: Male
  Weight: 97.977 kg

DRUGS (4)
  1. BYETTA INJECTION (0.25 MG/ML) [Suspect]
     Indication: DIABETES MELLITUS NON-INSULIN-DEPENDENT
     Dosage: 5 MCG;BID;SC
     Route: 058
     Dates: start: 20060118
  2. LANTUS [Concomitant]
  3. GLUCOPHAGE [Concomitant]
  4. HUMULIN [Concomitant]

REACTIONS (1)
  - BLOOD GLUCOSE INCREASED [None]
